FAERS Safety Report 5934914-8 (Version None)
Quarter: 2008Q4

REPORT INFORMATION
  Report Type: 
  Country: None (occurrence: None)
  Receive Date: 20081027
  Receipt Date: 20081017
  Transmission Date: 20090506
  Serious: Yes (Other)
  Sender: FDA-Public Use
  Company Number: 2008SP021181

PATIENT
  Age: 51 Year
  Sex: Female

DRUGS (2)
  1. RIBAVIRIN [Suspect]
     Indication: HEPATITIS C
     Dosage: PO
     Route: 048
  2. INTERFERON [Suspect]
     Indication: HEPATITIS C
     Dosage: QD

REACTIONS (4)
  - ABASIA [None]
  - BLOOD COUNT ABNORMAL [None]
  - DYSPNOEA [None]
  - THYROID DISORDER [None]
